FAERS Safety Report 9383635 (Version 4)
Quarter: 2014Q1

REPORT INFORMATION
  Report Type: Spontaneous
  Country: US (occurrence: US)
  Receive Date: 20130704
  Receipt Date: 20140328
  Transmission Date: 20141002
  Serious: Yes (Other)
  Sender: FDA-Public Use
  Company Number: US-PFIZER INC-2013197563

PATIENT
  Age: 52 Year
  Sex: Female
  Weight: 109 kg

DRUGS (2)
  1. LYRICA [Suspect]
     Indication: PAIN
     Dosage: 225 MG, 3X/DAY
     Route: 048
  2. LYRICA [Suspect]
     Dosage: UNK

REACTIONS (7)
  - Diabetes mellitus [Unknown]
  - Ligament sprain [Unknown]
  - Ligament sprain [Unknown]
  - Fall [Unknown]
  - Pain [Unknown]
  - Burning sensation [Unknown]
  - Malaise [Unknown]
